FAERS Safety Report 13397423 (Version 2)
Quarter: 2017Q2

REPORT INFORMATION
  Report Type: Spontaneous
  Country: NL (occurrence: NL)
  Receive Date: 20170403
  Receipt Date: 20170430
  Transmission Date: 20170830
  Serious: Yes (Other)
  Sender: FDA-Public Use
  Company Number: NL-TEVA-754588ACC

PATIENT
  Sex: Female
  Weight: 52 kg

DRUGS (1)
  1. RIZATRIPTAN TEVA ORODISP TABLET 10MG [Suspect]
     Active Substance: RIZATRIPTAN BENZOATE
     Indication: MIGRAINE
     Dosage: 1 TIME PER DAY AS REQUIRED
     Route: 048
     Dates: start: 2010

REACTIONS (3)
  - Suicidal ideation [Not Recovered/Not Resolved]
  - Therapeutic response decreased [Not Recovered/Not Resolved]
  - Depressed mood [Not Recovered/Not Resolved]

NARRATIVE: CASE EVENT DATE: 2010
